APPROVED DRUG PRODUCT: EMPAGLIFLOZIN
Active Ingredient: EMPAGLIFLOZIN
Strength: 10MG
Dosage Form/Route: TABLET;ORAL
Application: A212138 | Product #001
Applicant: ZYDUS PHARMACEUTICALS USA INC
Approved: Aug 3, 2022 | RLD: No | RS: No | Type: DISCN